FAERS Safety Report 10185587 (Version 1)
Quarter: 2014Q2

REPORT INFORMATION
  Report Type: Spontaneous
  Country: US (occurrence: None)
  Receive Date: 20140520
  Receipt Date: 20140520
  Transmission Date: 20141212
  Serious: Yes (Life-Threatening, Hospitalization)
  Sender: FDA-Public Use
  Company Number: None

PATIENT
  Age: 81 Year
  Sex: Male
  Weight: 95.3 kg

DRUGS (8)
  1. RIVAROXABAN [Suspect]
     Indication: ATRIAL FIBRILLATION
     Route: 048
  2. LIRAGLUTIDE [Concomitant]
  3. ATORVASTATIN [Concomitant]
  4. DILTIAZEM [Concomitant]
  5. FUNASTERIDE [Concomitant]
  6. GLIPIZIDE [Concomitant]
  7. TRAMADOL [Concomitant]
  8. NITROFURANTION [Concomitant]

REACTIONS (1)
  - Haemorrhagic infarction [None]
